FAERS Safety Report 5919855-4 (Version None)
Quarter: 2008Q4

REPORT INFORMATION
  Report Type: 
  Country: None (occurrence: None)
  Receive Date: 20081015
  Receipt Date: 20081003
  Transmission Date: 20090506
  Serious: Yes (Other)
  Sender: FDA-Public Use
  Company Number: FR-PFIZER INC-2008084993

PATIENT
  Age: 25 Year
  Sex: Male

DRUGS (1)
  1. CHAMPIX [Suspect]
     Indication: SMOKING CESSATION THERAPY

REACTIONS (6)
  - ARTERIOSPASM CORONARY [None]
  - CHEST PAIN [None]
  - FATIGUE [None]
  - MALAISE [None]
  - PAIN IN JAW [None]
  - SENSORY LOSS [None]
